FAERS Safety Report 26160137 (Version 1)
Quarter: 2025Q4

REPORT INFORMATION
  Report Type: Spontaneous
  Country: US (occurrence: US)
  Receive Date: 20251216
  Receipt Date: 20251216
  Transmission Date: 20260119
  Serious: No
  Sender: TEVA
  Company Number: US-TEVA-VS-3401411

PATIENT
  Age: 48 Year
  Sex: Female

DRUGS (1)
  1. LIDOCAINE [Suspect]
     Active Substance: LIDOCAINE
     Indication: Product used for unknown indication
     Dosage: 700MG/12HR
     Route: 065
     Dates: start: 2023

REACTIONS (3)
  - Drug ineffective [Unknown]
  - Product physical consistency issue [Unknown]
  - Product adhesion issue [Unknown]
